FAERS Safety Report 20818303 (Version 2)
Quarter: 2022Q2

REPORT INFORMATION
  Report Type: Spontaneous
  Country: US (occurrence: US)
  Receive Date: 20220512
  Receipt Date: 20220608
  Transmission Date: 20220721
  Serious: No
  Sender: FDA-Public Use
  Company Number: US-PFIZER INC-202200073858

PATIENT
  Age: 52 Year
  Sex: Female

DRUGS (1)
  1. XELJANZ [Suspect]
     Active Substance: TOFACITINIB CITRATE
     Indication: Colitis ulcerative
     Dosage: 10 MG, 2X/DAY
     Route: 048
     Dates: start: 20220110

REACTIONS (5)
  - Product dose omission in error [Unknown]
  - Diarrhoea [Unknown]
  - Nausea [Unknown]
  - Dry mouth [Unknown]
  - Headache [Unknown]

NARRATIVE: CASE EVENT DATE: 20220101
